FAERS Safety Report 25804054 (Version 2)
Quarter: 2025Q3

REPORT INFORMATION
  Report Type: Spontaneous
  Country: AR (occurrence: AR)
  Receive Date: 20250915
  Receipt Date: 20250930
  Transmission Date: 20251021
  Serious: Yes (Other)
  Sender: SANDOZ
  Company Number: AR-002147023-NVSC2024AR239117

PATIENT
  Age: 47 Year
  Sex: Female

DRUGS (7)
  1. FULVESTRANT [Suspect]
     Active Substance: FULVESTRANT
     Indication: Breast cancer metastatic
     Dosage: 500 MG, QMO
     Route: 030
     Dates: start: 20240215
  2. FULVESTRANT [Suspect]
     Active Substance: FULVESTRANT
     Indication: Breast cancer
     Route: 030
  3. KISQALI [Suspect]
     Active Substance: RIBOCICLIB SUCCINATE
     Indication: Breast cancer
     Dosage: 3 DOSAGE FORM (3 OF 200 MG (600 MG)), QD
     Route: 048
     Dates: start: 20240215
  4. KISQALI [Suspect]
     Active Substance: RIBOCICLIB SUCCINATE
     Indication: Breast cancer metastatic
  5. ASPIRIN [Concomitant]
     Active Substance: ASPIRIN
     Indication: Coagulopathy
     Dosage: 1 DOSAGE FORM, QD
     Route: 065
  6. Otevil [Concomitant]
     Indication: Dizziness
     Route: 065
  7. PREGABALIN [Concomitant]
     Active Substance: PREGABALIN
     Indication: Pain
     Route: 065

REACTIONS (13)
  - Deafness [Unknown]
  - Thrombosis [Unknown]
  - Decreased immune responsiveness [Recovering/Resolving]
  - Gait inability [Unknown]
  - Confusional state [Unknown]
  - Nervousness [Unknown]
  - Respiratory tract congestion [Recovered/Resolved]
  - Illness [Recovering/Resolving]
  - Visual impairment [Unknown]
  - Pain [Unknown]
  - Influenza [Recovered/Resolved]
  - Bone pain [Unknown]
  - Vomiting [Unknown]

NARRATIVE: CASE EVENT DATE: 20241201
